FAERS Safety Report 11002889 (Version 3)
Quarter: 2015Q2

REPORT INFORMATION
  Report Type: Report from Study
  Country: IT (occurrence: IT)
  Receive Date: 20150408
  Receipt Date: 20150519
  Transmission Date: 20150821
  Serious: Yes (Death)
  Sender: FDA-Public Use
  Company Number: IT-ABBVIE-15P-083-1372819-00

PATIENT
  Sex: Female
  Weight: 49 kg

DRUGS (2)
  1. DUODOPA [Suspect]
     Active Substance: CARBIDOPA\LEVODOPA
     Indication: PRODUCT USED FOR UNKNOWN INDICATION
     Dosage: 23 ML/H PEG-J CONTINOUS
     Route: 050
     Dates: end: 20150402
  2. RIVOTRIL [Concomitant]
     Active Substance: CLONAZEPAM
     Indication: PRODUCT USED FOR UNKNOWN INDICATION

REACTIONS (6)
  - Dysphagia [Unknown]
  - Jejunostomy [Unknown]
  - Death [Fatal]
  - Cognitive disorder [Unknown]
  - Weight decreased [Unknown]
  - Gastrostomy [Unknown]

NARRATIVE: CASE EVENT DATE: 201412
